FAERS Safety Report 6395925-4 (Version None)
Quarter: 2009Q4

REPORT INFORMATION
  Report Type: 
  Country: None (occurrence: None)
  Receive Date: 20091009
  Receipt Date: 20090908
  Transmission Date: 20100525
  Serious: No
  Sender: FDA-Public Use
  Company Number: A0806350A

PATIENT
  Age: 48 Year
  Sex: Female

DRUGS (4)
  1. TYKERB [Suspect]
     Indication: BREAST CANCER
     Dosage: 5MG PER DAY
     Route: 048
     Dates: start: 20090903
  2. XELODA [Suspect]
     Dosage: 500MG TWICE PER DAY
     Route: 048
     Dates: start: 20090905
  3. LOTENSIN [Concomitant]
  4. M.V.I. [Concomitant]

REACTIONS (1)
  - DIARRHOEA [None]
